FAERS Safety Report 8960203 (Version 1)
Quarter: 2012Q4

REPORT INFORMATION
  Report Type: 
  Country: US (occurrence: US)
  Receive Date: 20121211
  Receipt Date: 20121211
  Transmission Date: 20130627
  Serious: Yes (Other)
  Sender: FDA-Public Use
  Company Number: US-PFIZER INC-2012306476

PATIENT
  Age: 50 Year
  Sex: Male

DRUGS (3)
  1. VIAGRA [Suspect]
     Dosage: UNK
  2. LETAIRIS [Suspect]
     Indication: PRIMARY PULMONARY HYPERTENSION
     Dosage: 5 mg, 1x/day
     Route: 048
     Dates: start: 20101123
  3. REMODULIN [Concomitant]
     Dosage: UNK

REACTIONS (7)
  - Syncope [Unknown]
  - Fall [Unknown]
  - Humerus fracture [Not Recovered/Not Resolved]
  - Joint dislocation [Not Recovered/Not Resolved]
  - Hypotension [Not Recovered/Not Resolved]
  - Oedema [Not Recovered/Not Resolved]
  - Dizziness [Not Recovered/Not Resolved]
